FAERS Safety Report 5911066-1 (Version None)
Quarter: 2008Q4

REPORT INFORMATION
  Report Type: 
  Country: None (occurrence: None)
  Receive Date: 20081007
  Receipt Date: 20070824
  Transmission Date: 20090506
  Serious: No
  Sender: FDA-Public Use
  Company Number: US-BRISTOL-MYERS SQUIBB COMPANY-13888557

PATIENT
  Age: 82 Year
  Sex: Female
  Weight: 76 kg

DRUGS (1)
  1. AVAPRO [Suspect]

REACTIONS (3)
  - ERYTHEMA [None]
  - EYE SWELLING [None]
  - SKIN EXFOLIATION [None]
